FAERS Safety Report 13106106 (Version 7)
Quarter: 2018Q4

REPORT INFORMATION
  Report Type: Spontaneous
  Country: US (occurrence: US)
  Receive Date: 20170111
  Receipt Date: 20181004
  Transmission Date: 20190204
  Serious: No
  Sender: FDA-Public Use
  Company Number: PHEH2017US001232

PATIENT
  Age: 28 Year
  Sex: Female
  Weight: 81.63 kg

DRUGS (4)
  1. ONDANSETRON HYDROCHLORIDE. [Suspect]
     Active Substance: ONDANSETRON HYDROCHLORIDE
     Indication: MORNING SICKNESS
     Dosage: 8 MG, QD
     Route: 042
     Dates: start: 20131004, end: 20131005
  2. ONDANSETRON HYDROCHLORIDE. [Suspect]
     Active Substance: ONDANSETRON HYDROCHLORIDE
     Indication: MORNING SICKNESS
     Dosage: 4 MG, Q6H
     Route: 048
     Dates: start: 20130923, end: 20140425
  3. ZOFRAN [Suspect]
     Active Substance: ONDANSETRON HYDROCHLORIDE
     Indication: MORNING SICKNESS
     Route: 048
  4. ONDANSETRON HYDROCHLORIDE. [Suspect]
     Active Substance: ONDANSETRON HYDROCHLORIDE
     Dosage: 04 MG, UNK
     Route: 042
     Dates: start: 20131017, end: 20131017

REACTIONS (15)
  - Emotional distress [Unknown]
  - Depression [Unknown]
  - Dysuria [Unknown]
  - Vaginal haemorrhage [Unknown]
  - Neck pain [Unknown]
  - Peripheral swelling [Unknown]
  - Abdominal pain lower [Unknown]
  - Anxiety [Unknown]
  - Urinary tract infection [Unknown]
  - Obesity [Unknown]
  - Asthma [Unknown]
  - Swelling face [Unknown]
  - Product use in unapproved indication [Unknown]
  - Pain [Unknown]
  - Maternal exposure during pregnancy [Unknown]

NARRATIVE: CASE EVENT DATE: 20140426
